FAERS Safety Report 22176450 (Version 1)
Quarter: 2023Q2

REPORT INFORMATION
  Report Type: Spontaneous
  Country: US (occurrence: US)
  Receive Date: 20230405
  Receipt Date: 20230405
  Transmission Date: 20230721
  Serious: Yes (Other)
  Sender: FDA-Public Use
  Company Number: US-009507513-2304USA000068

PATIENT
  Sex: Male

DRUGS (1)
  1. KEYTRUDA [Suspect]
     Active Substance: PEMBROLIZUMAB
     Indication: Sarcoma
     Dosage: 200 MILLIGRAM, Q3W, 26 DOSES

REACTIONS (4)
  - Sarcoma [Unknown]
  - Recurrent cancer [Unknown]
  - Off label use [Unknown]
  - Drug effective for unapproved indication [Unknown]
